FAERS Safety Report 8207639-6 (Version None)
Quarter: 2012Q1

REPORT INFORMATION
  Report Type: 
  Country: None (occurrence: None)
  Receive Date: 20120314
  Receipt Date: 20120305
  Transmission Date: 20120608
  Serious: Yes (Death, Life-Threatening, Hospitalization, Other)
  Sender: FDA-Public Use
  Company Number: DE-JNJFOC-20120100352

PATIENT
  Sex: Female
  Weight: 120 kg

DRUGS (1)
  1. XARELTO [Suspect]
     Indication: ATRIAL FIBRILLATION
     Route: 048
     Dates: start: 20111223, end: 20111225

REACTIONS (5)
  - URINARY BLADDER HAEMORRHAGE [None]
  - VOMITING [None]
  - DEATH [None]
  - HAEMOGLOBIN DECREASED [None]
  - HEADACHE [None]
